FAERS Safety Report 7387681-8 (Version None)
Quarter: 2011Q1

REPORT INFORMATION
  Report Type: 
  Country: None (occurrence: None)
  Receive Date: 20110331
  Receipt Date: 20101029
  Transmission Date: 20110831
  Serious: Yes (Hospitalization, Other)
  Sender: FDA-Public Use
  Company Number: US-BAYER-201029487NA

PATIENT
  Sex: Female
  Weight: 143 kg

DRUGS (7)
  1. METFORMIN HCL [Concomitant]
     Dosage: 500 MG, UNK
     Route: 048
  2. YASMIN [Suspect]
     Indication: MENSTRUATION IRREGULAR
     Dosage: UNK
     Dates: start: 19950101, end: 20090101
  3. OCELLA [Suspect]
     Dosage: UNK
     Dates: start: 19950101, end: 20090101
  4. NAPROXEN [Concomitant]
  5. YASMIN [Suspect]
     Indication: ACNE
     Dosage: UNK
     Dates: start: 20080101, end: 20080201
  6. OCELLA [Suspect]
     Indication: MENSTRUATION IRREGULAR
     Dosage: UNK
     Dates: start: 20081001, end: 20090401
  7. METRONIDAZOLE [Concomitant]
     Dosage: 500 MG, UNK

REACTIONS (3)
  - ABDOMINAL PAIN UPPER [None]
  - INJURY [None]
  - CHOLECYSTITIS [None]
